FAERS Safety Report 19077895 (Version 1)
Quarter: 2021Q1

REPORT INFORMATION
  Report Type: Spontaneous
  Country: US (occurrence: US)
  Receive Date: 20210331
  Receipt Date: 20210331
  Transmission Date: 20210420
  Serious: Yes (Other)
  Sender: FDA-Public Use
  Company Number: US-PFIZER INC-2021329970

PATIENT
  Age: 23 Year
  Sex: Female

DRUGS (4)
  1. DOXORUBICIN HCL [Suspect]
     Active Substance: DOXORUBICIN HYDROCHLORIDE
     Indication: PANCREATOBLASTOMA
     Dosage: UNK
  2. ETOPOSIDE. [Suspect]
     Active Substance: ETOPOSIDE
     Indication: PANCREATOBLASTOMA
     Dosage: UNK
  3. CISPLATIN. [Suspect]
     Active Substance: CISPLATIN
     Indication: PANCREATOBLASTOMA
     Dosage: UNK
  4. CEFAZOLIN [Concomitant]
     Active Substance: CEFAZOLIN
     Indication: STAPHYLOCOCCAL INFECTION
     Dosage: UNK

REACTIONS (9)
  - Nausea [Unknown]
  - Abdominal pain [Unknown]
  - Cardiac murmur [Unknown]
  - Off label use [Unknown]
  - Tension headache [Unknown]
  - Syncope [Unknown]
  - Tinnitus [Unknown]
  - Maternal exposure during pregnancy [Unknown]
  - Hypotension [Unknown]
